FAERS Safety Report 9885657 (Version 2)
Quarter: 2014Q3

REPORT INFORMATION
  Report Type: Spontaneous
  Country: US (occurrence: US)
  Receive Date: 20140210
  Receipt Date: 20140729
  Transmission Date: 20150326
  Serious: Yes (Hospitalization, Other)
  Sender: FDA-Public Use
  Company Number: US-009507513-1402USA004194

PATIENT
  Sex: Female

DRUGS (1)
  1. NUVARING [Suspect]
     Active Substance: ETHINYL ESTRADIOL\ETONOGESTREL
     Indication: PRODUCT USED FOR UNKNOWN INDICATION
     Dosage: 1 RING X3 WK CONTINUOUSLY FOLLOWED BY 1 WK RING-FREE
     Route: 067
     Dates: start: 20120416, end: 20131129

REACTIONS (4)
  - Arthralgia [Unknown]
  - Deep vein thrombosis [Unknown]
  - Ovarian cystectomy [Unknown]
  - Pulmonary embolism [Unknown]

NARRATIVE: CASE EVENT DATE: 20131129
